FAERS Safety Report 7290076-9 (Version None)
Quarter: 2011Q1

REPORT INFORMATION
  Report Type: 
  Country: None (occurrence: None)
  Receive Date: 20110201
  Receipt Date: 20110117
  Transmission Date: 20110831
  Serious: Yes (Hospitalization)
  Sender: FDA-Public Use
  Company Number: AUR-APL-2011-00240

PATIENT
  Age: 41 Year
  Sex: Male
  Weight: 141 kg

DRUGS (5)
  1. CITALOPRAM HYDROBROMIDE [Concomitant]
  2. CLORAZEPATE DIPOTASSIUM [Concomitant]
  3. LEVETIRACETAM [Suspect]
     Indication: COMPLEX PARTIAL SEIZURES
     Dosage: 126 TABLETS TOTAL
  4. CARBAMAZEPINE [Concomitant]
  5. AMITRIPTYLINE HCL [Concomitant]

REACTIONS (10)
  - CONVULSION [None]
  - DEPRESSION [None]
  - FAMILY STRESS [None]
  - ECONOMIC PROBLEM [None]
  - PLATELET COUNT DECREASED [None]
  - LEUKOPENIA [None]
  - VISION BLURRED [None]
  - GAIT DISTURBANCE [None]
  - DRUG LEVEL INCREASED [None]
  - OVERDOSE [None]
